FAERS Safety Report 8505027-6 (Version None)
Quarter: 2012Q3

REPORT INFORMATION
  Report Type: 
  Country: None (occurrence: None)
  Receive Date: 20120702
  Receipt Date: 20120615
  Transmission Date: 20120928
  Serious: Yes (Other)
  Sender: FDA-Public Use
  Company Number: JPI-P-021924

PATIENT
  Age: 22 Year
  Sex: Female

DRUGS (2)
  1. XYREM [Suspect]
     Indication: COMPLEX REGIONAL PAIN SYNDROME
     Dosage: 4.5 GM (2.25 GM, 2 IN 1 D), ORAL,  7 GM (3.5 GM,2 IN 1 D),ORAL
     Route: 048
     Dates: start: 20120329, end: 20120401
  2. XYREM [Suspect]
     Indication: COMPLEX REGIONAL PAIN SYNDROME
     Dosage: 4.5 GM (2.25 GM, 2 IN 1 D), ORAL,  7 GM (3.5 GM,2 IN 1 D),ORAL
     Route: 048
     Dates: start: 20120313, end: 20120301

REACTIONS (8)
  - VOMITING [None]
  - FATIGUE [None]
  - PARAESTHESIA [None]
  - ACTIVITIES OF DAILY LIVING IMPAIRED [None]
  - WEIGHT INCREASED [None]
  - INITIAL INSOMNIA [None]
  - DELAYED RECOVERY FROM ANAESTHESIA [None]
  - MALAISE [None]
